FAERS Safety Report 4973537-4 (Version None)
Quarter: 2006Q2

REPORT INFORMATION
  Report Type: 
  Country: None (occurrence: None)
  Receive Date: 20060413
  Receipt Date: 20060413
  Transmission Date: 20061013
  Serious: Yes (Life-Threatening, Hospitalization, Other)
  Sender: FDA-Public Use
  Company Number: None

PATIENT
  Sex: Female
  Weight: 68.0396 kg

DRUGS (2)
  1. ORTHO EVRA [Suspect]
     Indication: CONTRACEPTION
     Dosage: 1 PATCH      1 PATCH/WK    TRANSDERMAL
     Route: 062
     Dates: start: 20051001, end: 20060309
  2. ORTHO EVRA [Suspect]
     Indication: OXYGEN SUPPLEMENTATION
     Dosage: 1 PATCH      1 PATCH/WK    TRANSDERMAL
     Route: 062
     Dates: start: 20051001, end: 20060309

REACTIONS (1)
  - PULMONARY EMBOLISM [None]
